FAERS Safety Report 23906185 (Version 1)
Quarter: 2024Q2

REPORT INFORMATION
  Report Type: Spontaneous
  Country: DK (occurrence: DK)
  Receive Date: 20240528
  Receipt Date: 20240528
  Transmission Date: 20240716
  Serious: Yes (Hospitalization)
  Sender: FDA-Public Use
  Company Number: None

PATIENT
  Age: 27 Year
  Sex: Female

DRUGS (1)
  1. WEGOVY [Suspect]
     Active Substance: SEMAGLUTIDE
     Indication: Product used for unknown indication
     Dosage: UNK
     Route: 058
     Dates: start: 2024

REACTIONS (4)
  - Haemoptysis [Recovering/Resolving]
  - Abdominal pain [Recovering/Resolving]
  - Vomiting [Recovering/Resolving]
  - Prescription drug used without a prescription [Unknown]

NARRATIVE: CASE EVENT DATE: 20240101
